FAERS Safety Report 10536557 (Version 1)
Quarter: 2014Q4

REPORT INFORMATION
  Report Type: Spontaneous
  Country: US (occurrence: US)
  Receive Date: 20141022
  Receipt Date: 20141022
  Transmission Date: 20150529
  Serious: No
  Sender: FDA-Public Use
  Company Number: US-RECKITT BENCKISER PHARMACEUTICAL, INC-RB-66689-2014

PATIENT

DRUGS (2)
  1. SUBOXONE [Suspect]
     Active Substance: BUPRENORPHINE HYDROCHLORIDE\NALOXONE HYDROCHLORIDE
     Indication: DRUG DEPENDENCE
     Dosage: SUBOXONE FILM; TAKING 8 MG DAILY, AT A FEW POINTS TAKING 12 MG DAILY, CUTTING
     Route: 060
     Dates: start: 2012
  2. ASACOL [Concomitant]
     Active Substance: MESALAMINE
     Indication: COLITIS
     Dosage: DOSING DETAILS UNKNOWN
     Route: 048

REACTIONS (6)
  - Drug screen negative [Recovered/Resolved]
  - Depression [Recovered/Resolved]
  - Extra dose administered [Recovered/Resolved]
  - Malaise [Not Recovered/Not Resolved]
  - Drug withdrawal syndrome [Not Recovered/Not Resolved]
  - Wrong technique in drug usage process [Recovered/Resolved]

NARRATIVE: CASE EVENT DATE: 201402
